FAERS Safety Report 8574938-8 (Version None)
Quarter: 2012Q3

REPORT INFORMATION
  Report Type: 
  Country: None (occurrence: None)
  Receive Date: 20120807
  Receipt Date: 20120727
  Transmission Date: 20120928
  Serious: Yes (Hospitalization)
  Sender: FDA-Public Use
  Company Number: US-BAYER-2012-077080

PATIENT
  Age: 20 Year
  Sex: Female
  Weight: 113.8 kg

DRUGS (5)
  1. PROTONIX [Concomitant]
  2. YASMIN [Suspect]
     Indication: DYSFUNCTIONAL UTERINE BLEEDING
  3. ZOLPIDEM [Concomitant]
  4. ANCEF [Concomitant]
  5. PHENERGAN HCL [Concomitant]

REACTIONS (2)
  - DEEP VEIN THROMBOSIS [None]
  - PULMONARY EMBOLISM [None]
